FAERS Safety Report 18318149 (Version 1)
Quarter: 2020Q3

REPORT INFORMATION
  Report Type: Spontaneous
  Country: US (occurrence: US)
  Receive Date: 20200928
  Receipt Date: 20200928
  Transmission Date: 20201103
  Serious: No
  Sender: FDA-Public Use
  Company Number: US-PFIZER INC-2020369233

PATIENT
  Age: 19 Year
  Sex: Female

DRUGS (2)
  1. FLAGYL [Suspect]
     Active Substance: METRONIDAZOLE\METRONIDAZOLE HYDROCHLORIDE
     Dosage: UNK
  2. PLAN B [Suspect]
     Active Substance: LEVONORGESTREL
     Dosage: UNK
     Dates: start: 20200821

REACTIONS (3)
  - Abdominal pain lower [Recovered/Resolved]
  - Headache [Recovered/Resolved]
  - Menstruation delayed [Unknown]

NARRATIVE: CASE EVENT DATE: 20200822
